FAERS Safety Report 11731005 (Version 1)
Quarter: 2015Q4

REPORT INFORMATION
  Report Type: Spontaneous
  Country: US (occurrence: US)
  Receive Date: 20151110
  Receipt Date: 20151110
  Transmission Date: 20160304
  Serious: No
  Sender: FDA-Public Use
  Company Number: US-ELI_LILLY_AND_COMPANY-US201202007609

PATIENT
  Age: 61 Year
  Sex: Female

DRUGS (1)
  1. FORTEO [Suspect]
     Active Substance: TERIPARATIDE
     Indication: OSTEOPOROSIS
     Dosage: 20 UG, QD
     Route: 065
     Dates: start: 20120223

REACTIONS (9)
  - Swollen tongue [Unknown]
  - Back pain [Unknown]
  - Injection site erythema [Unknown]
  - Nervousness [Unknown]
  - Injection site pain [Unknown]
  - Tongue ulceration [Unknown]
  - Tongue blistering [Unknown]
  - Glossodynia [Unknown]
  - Pain [Unknown]

NARRATIVE: CASE EVENT DATE: 20120223
